FAERS Safety Report 9769166 (Version 1)
Quarter: 2013Q4

REPORT INFORMATION
  Report Type: Spontaneous
  Country: US (occurrence: None)
  Receive Date: 20131216
  Receipt Date: 20131216
  Transmission Date: 20140711
  Serious: Yes (Other)
  Sender: FDA-Public Use
  Company Number: 2013-US-004103

PATIENT
  Age: 64 Year
  Sex: Female
  Weight: 86.2 kg

DRUGS (2)
  1. XYREM [Suspect]
     Route: 048
     Dates: start: 200406
  2. NATURE THROID (THYROID) [Concomitant]

REACTIONS (1)
  - Breast cancer female [None]
